FAERS Safety Report 10972741 (Version 1)
Quarter: 2015Q1

REPORT INFORMATION
  Report Type: Spontaneous
  Country: TH (occurrence: TH)
  Receive Date: 20150331
  Receipt Date: 20150331
  Transmission Date: 20150721
  Serious: Yes (Hospitalization)
  Sender: FDA-Public Use
  Company Number: TH-JNJFOC-20150313801

PATIENT
  Age: 45 Year
  Sex: Male

DRUGS (5)
  1. OFLOXACIN. [Suspect]
     Active Substance: OFLOXACIN
     Indication: TUBERCULOSIS
     Route: 048
  2. ETHAMBUTOL [Suspect]
     Active Substance: ETHAMBUTOL HYDROCHLORIDE
     Indication: TUBERCULOSIS
     Route: 048
  3. PARACETAMOL [Interacting]
     Active Substance: ACETAMINOPHEN
     Route: 048
  4. PARACETAMOL [Interacting]
     Active Substance: ACETAMINOPHEN
     Indication: TUBERCULOSIS
     Route: 048
  5. BISOLVON [Interacting]
     Active Substance: BROMHEXINE HYDROCHLORIDE
     Indication: TUBERCULOSIS
     Route: 048

REACTIONS (3)
  - Product use issue [Unknown]
  - Hepatitis [Recovering/Resolving]
  - Drug interaction [Recovering/Resolving]

NARRATIVE: CASE EVENT DATE: 20060216
